FAERS Safety Report 9439454 (Version 1)
Quarter: 2013Q3

REPORT INFORMATION
  Report Type: Spontaneous
  Country: US (occurrence: US)
  Receive Date: 20130805
  Receipt Date: 20130805
  Transmission Date: 20140515
  Serious: No
  Sender: FDA-Public Use
  Company Number: US-BIOGENIDEC-2013BI071277

PATIENT
  Age: 64 Year
  Sex: Female

DRUGS (6)
  1. AVONEX [Suspect]
     Indication: MULTIPLE SCLEROSIS
     Route: 030
     Dates: start: 20130214
  2. EPITOL [Concomitant]
  3. SENNA [Concomitant]
  4. LISINOPRIL [Concomitant]
  5. PAROXETINE HCL [Concomitant]
  6. CARBAMAZEPINE ER [Concomitant]

REACTIONS (2)
  - Herpes zoster [Unknown]
  - Coordination abnormal [Unknown]
